FAERS Safety Report 20168812 (Version 1)
Quarter: 2021Q4

REPORT INFORMATION
  Report Type: Spontaneous
  Country: US (occurrence: US)
  Receive Date: 20211210
  Receipt Date: 20211210
  Transmission Date: 20220303
  Serious: Yes (Life-Threatening, Hospitalization)
  Sender: FDA-Public Use
  Company Number: US-JNJFOC-20211203610

PATIENT
  Age: 37 Year
  Sex: Female
  Weight: 62 kg

DRUGS (4)
  1. ACETAMINOPHEN [Suspect]
     Active Substance: ACETAMINOPHEN
     Indication: Suicide attempt
     Dosage: SINGLE UNKNOWN DOSE OF ACETAMINOPHEN ON 07/JUL/2001 AT 12:00 AND CHRONIC USE FOR 14 DAYS
     Route: 048
     Dates: start: 20010707, end: 20010707
  2. PERCOCET [Suspect]
     Active Substance: ACETAMINOPHEN\OXYCODONE HYDROCHLORIDE
     Indication: Suicide attempt
     Route: 065
     Dates: end: 20010708
  3. VIOXX [Concomitant]
     Active Substance: ROFECOXIB
     Indication: Product used for unknown indication
     Route: 065
     Dates: end: 20010708
  4. FLUNITRAZEPAM [Concomitant]
     Active Substance: FLUNITRAZEPAM
     Indication: Product used for unknown indication
     Route: 065
     Dates: end: 20010708

REACTIONS (9)
  - Suicide attempt [Recovered/Resolved]
  - Acute hepatic failure [Recovered/Resolved]
  - Intentional overdose [Recovered/Resolved]
  - Product administration error [Recovered/Resolved]
  - Acute kidney injury [Recovered/Resolved]
  - Pneumonia [Recovered/Resolved]
  - Klebsiella infection [Recovered/Resolved]
  - Torulopsis infection [Recovered/Resolved]
  - Citrobacter infection [Recovered/Resolved]
